FAERS Safety Report 23300261 (Version 5)
Quarter: 2024Q3

REPORT INFORMATION
  Report Type: Report from Study
  Country: US (occurrence: US)
  Receive Date: 20231215
  Receipt Date: 20240910
  Transmission Date: 20241017
  Serious: Yes (Hospitalization, Other)
  Sender: ABBVIE
  Company Number: US-ABBVIE-5532453

PATIENT
  Sex: Female
  Weight: 99.336 kg

DRUGS (27)
  1. SKYRIZI [Suspect]
     Active Substance: RISANKIZUMAB-RZAA
     Indication: Psoriasis
     Route: 058
     Dates: start: 20210101
  2. SKYRIZI [Suspect]
     Active Substance: RISANKIZUMAB-RZAA
     Route: 058
  3. CHLORTHALIDONE [Concomitant]
     Active Substance: CHLORTHALIDONE
     Indication: Hypertension
     Dosage: TAKE 1 TABLET BY MOUTH EVERY 24 HOURS.
  4. DEXILANT [Concomitant]
     Active Substance: DEXLANSOPRAZOLE
     Indication: Gastrooesophageal reflux disease
     Dosage: TAKE 1 CAPSULE BY MOUTH EVERY DAY
  5. DULOXETINE [Concomitant]
     Active Substance: DULOXETINE
     Indication: Product used for unknown indication
     Dosage: TAKE 1 CAPSULE BY MOUTH EVERY AFTERNOON
  6. MECLIZINE [Concomitant]
     Active Substance: MECLIZINE HYDROCHLORIDE
     Indication: Dizziness
  7. EMPAGLIFLOZIN [Concomitant]
     Active Substance: EMPAGLIFLOZIN
     Indication: Product used for unknown indication
     Dosage: TAKE 1 TABLET BY MOUTH EVERY AFTERNOON.
  8. METOPROLOL [Concomitant]
     Active Substance: METOPROLOL
     Indication: Cardiac disorder
  9. ERGOCALCIFEROL [Concomitant]
     Active Substance: ERGOCALCIFEROL
     Indication: Product used for unknown indication
     Dosage: TAKE 1 CAPSULE BY MOUTH ONE TIME A WEEK.
  10. HALOBETASOL PROPIONATE [Concomitant]
     Active Substance: HALOBETASOL PROPIONATE
     Indication: Product used for unknown indication
     Dosage: APPLY TO AFFECTED AREA.
  11. ACETAMINOPHEN\HYDROCODONE [Concomitant]
     Active Substance: ACETAMINOPHEN\HYDROCODONE
     Indication: Product used for unknown indication
     Dosage: TAKE 1 TABLET BY MOUTH EVERY 12 HOURS AS NEEDED FOR PAIN FOR UP TO 30 DAYS.
  12. HYDROXYZINE HYDROCHLORIDE [Concomitant]
     Active Substance: HYDROXYZINE HYDROCHLORIDE
     Indication: Product used for unknown indication
     Dosage: TAKE 1 TABLET BY MOUTH TWICE DAILY AS NEEDED FOR ITCHING. MAY CAUSE DROWSINESS.
  13. LOSARTAN [Concomitant]
     Active Substance: LOSARTAN\LOSARTAN POTASSIUM
     Indication: Hypertension
     Dosage: TAKE 1 TABLET BY MOUTH ONCE DAILY
  14. METFORMIN [Concomitant]
     Active Substance: METFORMIN HYDROCHLORIDE
     Indication: Diabetes mellitus
     Dosage: STRENGTH: 500MG
     Route: 048
  15. PRAMIPEXOLE [Concomitant]
     Active Substance: PRAMIPEXOLE\PRAMIPEXOLE DIHYDROCHLORIDE
     Indication: Muscle spasms
     Dosage: STRENGTH: 0.125MG
     Route: 048
  16. PREDNISOLONE ACETATE [Concomitant]
     Active Substance: PREDNISOLONE ACETATE
     Indication: Product used for unknown indication
     Dosage: INSTILL 1 DROP IN OPERATIVE EYE(S) 4 TIMES A DAY FOR 1 WEEK, THEN 2 TIMES A DAY FOR 3 MORE WEEKS
     Route: 061
  17. ROSUVASTATIN [Concomitant]
     Active Substance: ROSUVASTATIN\ROSUVASTATIN CALCIUM
     Indication: Product used for unknown indication
     Dosage: STRENGTH: 20MG
     Route: 048
  18. SPIRONOLACTONE [Concomitant]
     Active Substance: SPIRONOLACTONE
     Indication: Product used for unknown indication
     Dosage: STRENGTH: 50MG
     Route: 048
  19. ALBUTEROL SULFATE [Concomitant]
     Active Substance: ALBUTEROL SULFATE
     Indication: Product used for unknown indication
     Dosage: INHALE 2 PUFFS AS INSTRUCTED EVERY 6 HOURS AS NEEDED.
     Route: 055
  20. ALBUTEROL [Concomitant]
     Active Substance: ALBUTEROL
     Indication: Chronic obstructive pulmonary disease
     Dosage: USE 3 ML VIA NEBULIZER TWO TIMES A DAY AS NEEDED.
     Route: 055
  21. ANORO ELLIPTA [Concomitant]
     Active Substance: UMECLIDINIUM BROMIDE\VILANTEROL TRIFENATATE
     Indication: Product used for unknown indication
     Dosage: INHALE 1 INHALATION AS INSTRUCTED ONCE DAILY
  22. DICYCLOMINE [Concomitant]
     Active Substance: DICYCLOMINE HYDROCHLORIDE
     Indication: Nausea
  23. ASPIRIN [Concomitant]
     Active Substance: ASPIRIN
     Indication: Product used for unknown indication
     Dosage: TAKE 81 MG BY MOUTH TWICE DAILY.
  24. JARDIANCE [Concomitant]
     Active Substance: EMPAGLIFLOZIN
     Indication: Diabetes mellitus
  25. CALCIPOTRIENE [Concomitant]
     Active Substance: CALCIPOTRIENE
     Indication: Product used for unknown indication
     Dosage: APPLY 1 APPLICATION TO AFFECTED AREA.
  26. VITAMIN D3 [Concomitant]
     Active Substance: CHOLECALCIFEROL
     Indication: Product used for unknown indication
  27. CALCIUM CITRATE\CHOLECALCIFEROL [Concomitant]
     Active Substance: CALCIUM CITRATE\CHOLECALCIFEROL
     Indication: Product used for unknown indication
     Dosage: TAKE 1 TABLET BY MOUTH THREE TIMES A DAY WITH MEALS.

REACTIONS (54)
  - Osteoarthritis [Recovered/Resolved]
  - Dyspnoea [Recovered/Resolved]
  - Shoulder arthroplasty [Recovered/Resolved]
  - Cataract [Recovered/Resolved]
  - Cataract [Unknown]
  - Knee arthroplasty [Unknown]
  - Caesarean section [Unknown]
  - Carpal tunnel syndrome [Unknown]
  - Oophorectomy [Unknown]
  - Cholecystectomy [Unknown]
  - Appendicectomy [Unknown]
  - Tonsillectomy [Unknown]
  - Peroneal nerve palsy [Unknown]
  - Poliomyelitis [Unknown]
  - Hip arthroplasty [Unknown]
  - Abdominal pain upper [Unknown]
  - Chronic obstructive pulmonary disease [Unknown]
  - Dyspnoea [Unknown]
  - Emphysema [Unknown]
  - Obesity [Unknown]
  - Pulmonary mass [Unknown]
  - Hypoxia [Unknown]
  - Interstitial lung disease [Unknown]
  - Piriformis syndrome [Unknown]
  - Radiculopathy [Unknown]
  - Muscle atrophy [Unknown]
  - Hyperlipidaemia [Unknown]
  - Hypertension [Unknown]
  - Anaemia [Unknown]
  - Benign neoplasm [Unknown]
  - Osteoarthritis [Unknown]
  - Urinary tract infection [Unknown]
  - Nocturia [Unknown]
  - Restless legs syndrome [Unknown]
  - Neurogenic bladder [Unknown]
  - Intervertebral disc degeneration [Unknown]
  - Osteoarthritis [Unknown]
  - Decreased activity [Unknown]
  - Trigger finger [Unknown]
  - Tendonitis [Unknown]
  - Sciatica [Unknown]
  - Pain in extremity [Unknown]
  - Post polio syndrome [Unknown]
  - Tenosynovitis stenosans [Unknown]
  - Rotator cuff syndrome [Unknown]
  - Presbyopia [Unknown]
  - Bronchitis chronic [Unknown]
  - Chronic sinusitis [Unknown]
  - Seasonal allergy [Unknown]
  - Chronic kidney disease [Unknown]
  - Pain [Unknown]
  - Myofascial pain syndrome [Unknown]
  - Neuralgia [Unknown]
  - Arthralgia [Unknown]

NARRATIVE: CASE EVENT DATE: 20220101
